FAERS Safety Report 9695655 (Version 1)
Quarter: 2013Q4

REPORT INFORMATION
  Report Type: Spontaneous
  Country: FR (occurrence: FR)
  Receive Date: 20131119
  Receipt Date: 20131119
  Transmission Date: 20140711
  Serious: Yes (Death, Life-Threatening, Hospitalization)
  Sender: FDA-Public Use
  Company Number: FR-PFIZER INC-2013326061

PATIENT
  Age: 77 Year
  Sex: Female

DRUGS (9)
  1. ALDACTONE [Suspect]
     Dosage: 50 MG, 1X/DAY
     Route: 048
  2. PAROXETINE HYDROCHLORIDE [Suspect]
     Dosage: 10 MG, 1X/DAY
     Route: 048
  3. COUMADINE [Suspect]
     Dosage: 1.5 TABLET (3MG) ONE DAY, 2 TABLETS (4MG)OTHER DAY
     Route: 048
     Dates: end: 20130927
  4. KEPPRA [Suspect]
     Dosage: 250 MG, 2X/DAY
     Route: 048
  5. DIGOXIN ^NATIVELLE^ [Suspect]
     Dosage: 0.25 MG, 1X/DAY
     Route: 048
     Dates: end: 20130926
  6. LASILIX FAIBLE [Suspect]
     Dosage: 20 MG, 1X/DAY
  7. INEXIUM [Suspect]
     Dosage: 20 MG, 1X/DAY
     Route: 048
  8. TARDYFERON [Suspect]
     Dosage: 80 MG, 2X/DAY
     Route: 048
     Dates: end: 20130927
  9. IMOVANE [Suspect]
     Dosage: 7.5 MG, 1X/DAY
     Route: 048
     Dates: end: 20130926

REACTIONS (2)
  - Haematoma [Fatal]
  - Melaena [Unknown]
